FAERS Safety Report 6816644-3 (Version None)
Quarter: 2010Q3

REPORT INFORMATION
  Report Type: 
  Country: None (occurrence: None)
  Receive Date: 20100706
  Receipt Date: 20100622
  Transmission Date: 20110219
  Serious: Yes (Other)
  Sender: FDA-Public Use
  Company Number: US-JNJFOC-20100607906

PATIENT

DRUGS (2)
  1. CONCENTRATED TYLENOL INFANT DROPS [Suspect]
     Indication: PYREXIA
  2. CONCENTRATED TYLENOL INFANT DROPS [Suspect]
     Indication: TEETHING

REACTIONS (3)
  - BREAST MASS [None]
  - BREAST SWELLING [None]
  - PRODUCT QUALITY ISSUE [None]
